FAERS Safety Report 9237257 (Version 1)
Quarter: 2013Q2

REPORT INFORMATION
  Report Type: Other
  Country: FR (occurrence: FR)
  Receive Date: 20130417
  Receipt Date: 20130417
  Transmission Date: 20140414
  Serious: Yes (Hospitalization, Other)
  Sender: FDA-Public Use
  Company Number: FR-MYLANLABS-2013S1007517

PATIENT
  Age: 62 Year
  Sex: Female

DRUGS (5)
  1. ITRACONAZOLE [Suspect]
     Indication: ASPERGILLUS INFECTION
  2. AMIODARONE [Suspect]
     Indication: ARRHYTHMIA SUPRAVENTRICULAR
     Dates: end: 2009
  3. PREDNISOLONE [Suspect]
     Indication: PRODUCT USED FOR UNKNOWN INDICATION
     Route: 048
  4. BUDESONIDE [Suspect]
  5. BUDESONIDE [Concomitant]
     Indication: RESPIRATORY FAILURE

REACTIONS (2)
  - Cushing^s syndrome [Not Recovered/Not Resolved]
  - Hepatosplenomegaly [Not Recovered/Not Resolved]
